FAERS Safety Report 19076435 (Version 2)
Quarter: 2021Q3

REPORT INFORMATION
  Report Type: Report from Study
  Country: JP (occurrence: JP)
  Receive Date: 20210331
  Receipt Date: 20210921
  Transmission Date: 20211014
  Serious: Yes (Life-Threatening, Hospitalization, Other)
  Sender: FDA-Public Use
  Company Number: JP-JNJFOC-A-CH2013-85480

PATIENT
  Age: 35 Year
  Sex: Male

DRUGS (53)
  1. MIGLUSTAT. [Interacting]
     Active Substance: MIGLUSTAT
     Dosage: 200 MG, TID
     Route: 048
     Dates: start: 20150918
  2. MEROPENEM. [Interacting]
     Active Substance: MEROPENEM
     Dosage: DOSE UNKNOWN
     Route: 042
     Dates: start: 20140907, end: 20140907
  3. MEROPENEM. [Interacting]
     Active Substance: MEROPENEM
     Route: 042
     Dates: start: 20150221, end: 20150301
  4. LOPERAMIDE HYDROCHLORIDE. [Concomitant]
     Active Substance: LOPERAMIDE HYDROCHLORIDE
     Indication: PROPHYLAXIS AGAINST DIARRHOEA
     Route: 050
     Dates: start: 20130118
  5. DOMPERIDONE [Concomitant]
     Active Substance: DOMPERIDONE
     Indication: NAUSEA
     Route: 050
     Dates: start: 20140606, end: 20140710
  6. METRONIDAZOLE. [Concomitant]
     Active Substance: METRONIDAZOLE
  7. VITAMINS NOS/ELECTROLYTES NOS/CARBOHYDRATES NOS/PROTEINS NOS/LIPIDS NOS [Concomitant]
     Indication: NUTRITIONAL SUPPLEMENTATION
     Dosage: DOSE UNKNOWN
  8. DIAZEPAM. [Concomitant]
     Active Substance: DIAZEPAM
     Indication: DYSTONIA
     Route: 042
     Dates: start: 20170701, end: 20170701
  9. MEROPENEM. [Interacting]
     Active Substance: MEROPENEM
     Indication: PNEUMONIA
     Route: 042
     Dates: start: 20141025, end: 20141104
  10. TRIENTINE [Concomitant]
     Active Substance: TRIENTINE
     Indication: HEPATO-LENTICULAR DEGENERATION
     Route: 050
     Dates: end: 20140907
  11. LEVOCETIRIZINE [Concomitant]
     Active Substance: LEVOCETIRIZINE
  12. MIGLUSTAT. [Interacting]
     Active Substance: MIGLUSTAT
     Dosage: 200MG Q.D. ? 100MG Q.D. ? 100MG Q.D.
     Route: 048
     Dates: start: 20130201, end: 20130214
  13. ZOSYN [Interacting]
     Active Substance: PIPERACILLIN SODIUM\TAZOBACTAM SODIUM
     Route: 042
     Dates: start: 20140907, end: 20140929
  14. ZOSYN [Interacting]
     Active Substance: PIPERACILLIN SODIUM\TAZOBACTAM SODIUM
     Dosage: 18 G, UNK
     Route: 042
     Dates: start: 20141020, end: 20141025
  15. CLONAZEPAM. [Concomitant]
     Active Substance: CLONAZEPAM
     Route: 050
  16. SODIUM VALPROATE [Concomitant]
     Active Substance: VALPROATE SODIUM
     Indication: DYSKINESIA
     Route: 050
     Dates: start: 20141017, end: 20141028
  17. INFLUENZA VACCINE [Concomitant]
     Active Substance: INFLUENZA VIRUS VACCINE
     Indication: ANTIVIRAL PROPHYLAXIS
     Route: 058
     Dates: start: 20161128, end: 20161128
  18. MIGLUSTAT. [Suspect]
     Active Substance: MIGLUSTAT
     Indication: NIEMANN-PICK DISEASE
     Dosage: 200MG Q.D. ? 200MG Q.D. ? 100MG Q.D.
     Route: 048
     Dates: start: 20130215, end: 20130228
  19. MIGLUSTAT. [Interacting]
     Active Substance: MIGLUSTAT
     Dosage: UNK MG, UNK
     Route: 048
     Dates: start: 20130118, end: 20130201
  20. MIGLUSTAT. [Interacting]
     Active Substance: MIGLUSTAT
     Dosage: 100 MG, TID
     Route: 048
     Dates: start: 20130302, end: 20130429
  21. MIGLUSTAT. [Interacting]
     Active Substance: MIGLUSTAT
     Dosage: 100 MG, TID
     Route: 048
     Dates: start: 20141105, end: 20141109
  22. ZOSYN [Interacting]
     Active Substance: PIPERACILLIN SODIUM\TAZOBACTAM SODIUM
     Route: 042
     Dates: start: 20140520, end: 20140529
  23. AMBROXOL HYDROCHLORIDE [Concomitant]
     Active Substance: AMBROXOL HYDROCHLORIDE
     Route: 050
     Dates: start: 20141219
  24. MOSAPRIDE [Concomitant]
     Active Substance: MOSAPRIDE
     Route: 050
     Dates: start: 20150910
  25. BROMHEXINE HYDROCHLORIDE [Concomitant]
     Active Substance: BROMHEXINE HYDROCHLORIDE
     Route: 050
  26. MIGLUSTAT. [Interacting]
     Active Substance: MIGLUSTAT
     Dosage: 200MG Q.D. ? 100MG Q.D. ? 100MG Q.D.
     Route: 048
     Dates: start: 20130430, end: 20131009
  27. MIGLUSTAT. [Interacting]
     Active Substance: MIGLUSTAT
     Dosage: 100 MG, TID
     Route: 048
     Dates: start: 20131009, end: 20141023
  28. MEROPENEM. [Interacting]
     Active Substance: MEROPENEM
     Route: 042
     Dates: start: 20141109, end: 20141118
  29. MEROPENEM. [Interacting]
     Active Substance: MEROPENEM
     Dosage: DOSE UNKNOWN
     Route: 042
     Dates: start: 20140520, end: 20140520
  30. MEROPENEM. [Interacting]
     Active Substance: MEROPENEM
     Dosage: DOSE UNKNOWN
     Route: 042
     Dates: start: 20140930, end: 20140930
  31. LACTOMIN [Concomitant]
     Active Substance: DIETARY SUPPLEMENT\PROBIOTICS
     Indication: DIARRHOEA
     Route: 050
  32. FAMOTIDINE. [Concomitant]
     Active Substance: FAMOTIDINE
  33. TRIHEXYPHENIDYL [Concomitant]
     Active Substance: TRIHEXYPHENIDYL
     Indication: DYSTONIA
     Route: 050
     Dates: start: 20141010
  34. AMBROXOL [Concomitant]
     Active Substance: AMBROXOL
  35. BOTULINUM TOXIN TYPE A [Concomitant]
     Active Substance: BOTULINUM TOXIN TYPE A
  36. MAGNESIUM OXIDE. [Concomitant]
     Active Substance: MAGNESIUM OXIDE
     Indication: CONSTIPATION
     Route: 050
     Dates: start: 20151022
  37. MAGNESIUM OXIDE. [Concomitant]
     Active Substance: MAGNESIUM OXIDE
     Route: 050
  38. MIGLUSTAT. [Interacting]
     Active Substance: MIGLUSTAT
     Dosage: 100 MG, TID
     Route: 048
     Dates: start: 20141215, end: 20150622
  39. ZOSYN [Interacting]
     Active Substance: PIPERACILLIN SODIUM\TAZOBACTAM SODIUM
     Route: 042
     Dates: start: 20140930, end: 20141008
  40. MEROPENEM. [Interacting]
     Active Substance: MEROPENEM
     Dosage: DOSE UNKNOWN
     Route: 042
     Dates: start: 20141020, end: 20141020
  41. AMBROXOL HYDROCHLORIDE [Concomitant]
     Active Substance: AMBROXOL HYDROCHLORIDE
     Indication: SPUTUM RETENTION
     Route: 050
     Dates: start: 20141219
  42. MOSAPRIDE [Concomitant]
     Active Substance: MOSAPRIDE
     Indication: GASTROINTESTINAL MOTILITY DISORDER
     Route: 050
     Dates: start: 20140316, end: 20150909
  43. BROMHEXINE HYDROCHLORIDE [Concomitant]
     Active Substance: BROMHEXINE HYDROCHLORIDE
     Route: 050
  44. ASCORBIC ACID/PYRIDOXINE HYDROCHLORIDE/BIOTIN/FOLIC ACID/NICOTINIC ACID/CHOLINE/RETINOL/PANTOTHENIC [Concomitant]
     Indication: NUTRITIONAL SUPPLEMENTATION
     Dosage: DOSE UNKNOWN,
     Route: 065
  45. MIGLUSTAT. [Interacting]
     Active Substance: MIGLUSTAT
     Dosage: 100MG Q.D. ? 200MG Q.D. ? 200MG Q.D.
     Route: 048
     Dates: start: 20150724, end: 20150917
  46. MEROPENEM. [Interacting]
     Active Substance: MEROPENEM
     Route: 042
     Dates: start: 20150406, end: 20150413
  47. BROMHEXINE HYDROCHLORIDE [Concomitant]
     Active Substance: BROMHEXINE HYDROCHLORIDE
     Indication: PRODUCTIVE COUGH
     Dosage: 50 UNITS
     Route: 050
     Dates: start: 20130416
  48. MIGLUSTAT. [Interacting]
     Active Substance: MIGLUSTAT
     Dosage: 100MG Q.D. ? 100MG Q.D. ? 200MG Q.D.
     Route: 048
     Dates: start: 20150623, end: 20150623
  49. ZOSYN [Interacting]
     Active Substance: PIPERACILLIN SODIUM\TAZOBACTAM SODIUM
     Indication: PNEUMONIA
     Route: 042
     Dates: start: 20140315, end: 20140323
  50. CARBOCISTEINE [Concomitant]
     Active Substance: CARBOCYSTEINE
     Indication: SPUTUM RETENTION
     Route: 050
  51. CEFCAPENE PIVOXIL [Concomitant]
     Active Substance: CEFCAPENE PIVOXIL
     Indication: PYREXIA
     Route: 050
     Dates: start: 20131009, end: 20131016
  52. CLONAZEPAM. [Concomitant]
     Active Substance: CLONAZEPAM
     Indication: DYSTONIA
     Dosage: 0.3?0.5MG
     Route: 050
  53. ENTEROCOCCUS FAECALIS [Concomitant]
     Active Substance: ENTEROCOCCUS FAECALIS
     Indication: PROPHYLAXIS AGAINST DIARRHOEA
     Route: 050
     Dates: start: 20131009, end: 20131016

REACTIONS (21)
  - Niemann-Pick disease [Unknown]
  - Radial head dislocation [Not Recovered/Not Resolved]
  - Haematochezia [Recovered/Resolved]
  - Productive cough [Recovered/Resolved]
  - Restlessness [Recovered/Resolved]
  - Platelet count decreased [Recovered/Resolved]
  - Dystonia [Not Recovered/Not Resolved]
  - White blood cell count decreased [Recovered/Resolved]
  - Diarrhoea [Recovered/Resolved with Sequelae]
  - Muscle spasms [Recovering/Resolving]
  - Drug interaction [Recovered/Resolved]
  - Tracheostomy [Unknown]
  - Disease progression [Unknown]
  - Hypotension [Recovered/Resolved]
  - Bronchitis [Recovered/Resolved]
  - Joint dislocation [Not Recovered/Not Resolved]
  - Urticaria [Recovered/Resolved]
  - Pneumonia [Recovered/Resolved]
  - Pyrexia [Recovered/Resolved]
  - Delirium [Recovered/Resolved]
  - Pneumonia aspiration [Recovered/Resolved]

NARRATIVE: CASE EVENT DATE: 20130228
